FAERS Safety Report 11844508 (Version 1)
Quarter: 2015Q4

REPORT INFORMATION
  Report Type: Spontaneous
  Country: US (occurrence: None)
  Receive Date: 20151216
  Receipt Date: 20151216
  Transmission Date: 20160305
  Serious: No
  Sender: FDA-Public Use
  Company Number: None

PATIENT
  Age: 56 Year
  Sex: Male
  Weight: 105.69 kg

DRUGS (1)
  1. REPATHA [Suspect]
     Active Substance: EVOLOCUMAB
     Indication: BLOOD CHOLESTEROL INCREASED
     Dosage: REPATHA 140 MG/ML  2X/MONTH INJECTION
     Dates: start: 20151111

REACTIONS (4)
  - Eye pain [None]
  - Arthralgia [None]
  - Condition aggravated [None]
  - Back pain [None]

NARRATIVE: CASE EVENT DATE: 20151111
